FAERS Safety Report 6713719-4 (Version None)
Quarter: 2010Q2

REPORT INFORMATION
  Report Type: 
  Country: None (occurrence: None)
  Receive Date: 20100506
  Receipt Date: 20100424
  Transmission Date: 20101027
  Serious: Yes (Hospitalization)
  Sender: FDA-Public Use
  Company Number: US-CELGENEUS-163-21880-10042046

PATIENT
  Age: 83 Year
  Sex: Male
  Weight: 74 kg

DRUGS (3)
  1. REVLIMID [Suspect]
     Route: 048
     Dates: start: 20090908
  2. REVLIMID [Suspect]
     Route: 048
  3. DEXAMETHASONE [Suspect]
     Route: 065
     Dates: start: 20090908

REACTIONS (1)
  - ATRIOVENTRICULAR BLOCK [None]
